FAERS Safety Report 12222132 (Version 1)
Quarter: 2016Q1

REPORT INFORMATION
  Report Type: Spontaneous
  Country: US (occurrence: US)
  Receive Date: 20160330
  Receipt Date: 20160330
  Transmission Date: 20160526
  Serious: Yes (Other)
  Sender: FDA-Public Use
  Company Number: US-JNJFOC-20160327289

PATIENT
  Age: 60 Year
  Sex: Female

DRUGS (1)
  1. INVOKANA [Suspect]
     Active Substance: CANAGLIFLOZIN
     Indication: TYPE 2 DIABETES MELLITUS
     Dosage: CANAGLIFLOZIN DOSES TAKEN FOR APPROXIMATELY 1-2 WEEKS
     Route: 048

REACTIONS (2)
  - Nephropathy [Unknown]
  - Hyperkalaemia [Unknown]
